FAERS Safety Report 20918476 (Version 1)
Quarter: 2022Q2

REPORT INFORMATION
  Report Type: Spontaneous
  Country: US (occurrence: US)
  Receive Date: 20220606
  Receipt Date: 20220606
  Transmission Date: 20220721
  Serious: Yes (Hospitalization, Other)
  Sender: FDA-Public Use
  Company Number: US-ASTELLAS-2022US020112

PATIENT
  Age: 58 Year
  Sex: Female

DRUGS (11)
  1. TACROLIMUS [Interacting]
     Active Substance: TACROLIMUS
     Indication: Lung transplant
     Dosage: 2.5 MG, TWICE DAILY  (JAN 06-07 AM AN PM)
     Route: 065
  2. TACROLIMUS [Interacting]
     Active Substance: TACROLIMUS
     Dosage: 2.5 MG, TWICE DAILY  (JAN 07-08 AM AND PM)
     Route: 065
  3. TACROLIMUS [Interacting]
     Active Substance: TACROLIMUS
     Dosage: 2.5 MG, TWICE DAILY  (JAN 08-09 AM AND PM)
     Route: 065
  4. TACROLIMUS [Interacting]
     Active Substance: TACROLIMUS
     Dosage: 0.5 MG, UNKNOWN FREQ. (ON DAY 5, JAN 13-14))
     Route: 065
  5. TACROLIMUS [Interacting]
     Active Substance: TACROLIMUS
     Dosage: 1.5 MG, TWICE DAILY  (ON DAY 6, JAN14-15 AT 08:30 AND 17:39)
     Route: 065
  6. TACROLIMUS [Interacting]
     Active Substance: TACROLIMUS
     Dosage: 1.5 MG AT 08:35+0.5MG AT 16:59 +2MG AT 17:55, THRICE DAILY  (ON DAY 7, JAN 15-16)
     Route: 065
  7. NIRMATRELVIR\RITONAVIR [Interacting]
     Active Substance: NIRMATRELVIR\RITONAVIR
     Indication: COVID-19
     Dosage: 300 MG/100 MG, UNKNOWN FREQ (JAN 06-07)
     Route: 065
  8. NIRMATRELVIR\RITONAVIR [Interacting]
     Active Substance: NIRMATRELVIR\RITONAVIR
     Dosage: 300 MG/100, TWICE DAILY (JAN 07-08 AM AND PM)
     Route: 065
  9. NIRMATRELVIR\RITONAVIR [Interacting]
     Active Substance: NIRMATRELVIR\RITONAVIR
     Dosage: 300 MG/100, TWICE DAILY (JAN 08-09 AM AND PM)
     Route: 065
  10. NIRMATRELVIR\RITONAVIR [Interacting]
     Active Substance: NIRMATRELVIR\RITONAVIR
     Dosage: 300 MG/100 MG, UNKNOWN FREQ (JAN 09-10)
     Route: 065
  11. PREDNISONE [Interacting]
     Active Substance: PREDNISONE
     Indication: Lung transplant
     Route: 065

REACTIONS (3)
  - Toxicity to various agents [Recovered/Resolved]
  - Acute kidney injury [Unknown]
  - Drug interaction [Recovered/Resolved]
